FAERS Safety Report 25080824 (Version 1)
Quarter: 2025Q1

REPORT INFORMATION
  Report Type: Spontaneous
  Country: IT (occurrence: IT)
  Receive Date: 20250315
  Receipt Date: 20250315
  Transmission Date: 20250408
  Serious: Yes (Other)
  Sender: QUAGEN PHARMACEUTICALS
  Company Number: IT-QUAGEN-2025QUALIT00269

PATIENT

DRUGS (7)
  1. LIDOCAINE [Suspect]
     Active Substance: LIDOCAINE
     Indication: Sedation
     Route: 065
  2. MIDAZOLAM [Suspect]
     Active Substance: MIDAZOLAM
     Indication: Sedation
     Route: 040
  3. FENTANYL [Suspect]
     Active Substance: FENTANYL
     Indication: Sedation
     Route: 040
  4. KETAMINE [Suspect]
     Active Substance: KETAMINE
     Indication: Sedation
     Route: 040
  5. KETAMINE [Suspect]
     Active Substance: KETAMINE
     Route: 040
  6. HEPARIN [Concomitant]
     Active Substance: HEPARIN SODIUM
     Indication: Product used for unknown indication
     Route: 065
  7. ATROPINE [Concomitant]
     Active Substance: ATROPINE
     Indication: Product used for unknown indication
     Route: 065

REACTIONS (2)
  - Hallucination, visual [Not Recovered/Not Resolved]
  - Product use in unapproved indication [Unknown]
